FAERS Safety Report 4498166-0 (Version None)
Quarter: 2004Q3

REPORT INFORMATION
  Report Type: 
  Country: None (occurrence: None)
  Receive Date: 20040927
  Receipt Date: 20040604
  Transmission Date: 20050211
  Serious: No
  Sender: FDA-Public Use
  Company Number: USA040669333

PATIENT
  Age: 7 Year
  Sex: Male
  Weight: 21 kg

DRUGS (3)
  1. STRATTERA [Suspect]
     Indication: ATTENTION DEFICIT/HYPERACTIVITY DISORDER
     Dosage: 40 MG DAY
     Dates: start: 20031201
  2. ZYRTEC [Concomitant]
  3. RHINOCORT [Concomitant]

REACTIONS (3)
  - ABDOMINAL PAIN [None]
  - HUNGER [None]
  - PRESCRIBED OVERDOSE [None]
